FAERS Safety Report 5261537-9 (Version None)
Quarter: 2007Q1

REPORT INFORMATION
  Report Type: 
  Country: None (occurrence: None)
  Receive Date: 20061218
  Receipt Date: 20060804
  Transmission Date: 20070707
  Serious: No
  Sender: FDA-Public Use
  Company Number: US200608001198

PATIENT
  Age: 42 Year
  Sex: Male

DRUGS (1)
  1. CIALIS [Suspect]
     Indication: ERECTILE DYSFUNCTION
     Dosage: 20 MG
     Dates: start: 20060802

REACTIONS (3)
  - ABDOMINAL PAIN UPPER [None]
  - DRUG INEFFECTIVE [None]
  - NAUSEA [None]
